FAERS Safety Report 14996825 (Version 7)
Quarter: 2020Q2

REPORT INFORMATION
  Report Type: Spontaneous
  Country: CA (occurrence: CA)
  Receive Date: 20180611
  Receipt Date: 20200409
  Transmission Date: 20200713
  Serious: Yes (Disabling)
  Sender: FDA-Public Use
  Company Number: CA-PFIZER INC-2017204904

PATIENT
  Age: 51 Year
  Sex: Female

DRUGS (22)
  1. GENOTROPIN [Suspect]
     Active Substance: SOMATROPIN
     Indication: GROWTH HORMONE DEFICIENCY
     Dosage: 0.3 MG, 1X/DAY (AROUND 9AM)
     Route: 058
     Dates: start: 20170503, end: 20170506
  2. GENOTROPIN [Suspect]
     Active Substance: SOMATROPIN
     Dosage: 0.2 MG, DAILY AROUND 8 PM
     Route: 058
     Dates: start: 20170509, end: 2017
  3. CORTEF [Concomitant]
     Active Substance: HYDROCORTISONE
     Dosage: 5MG AT AROUND 14PM
     Route: 048
     Dates: start: 20170507
  4. CORTEF [Concomitant]
     Active Substance: HYDROCORTISONE
     Dosage: 10 MG AM, 5 MG PM (LUNCHTIME)
     Route: 048
     Dates: end: 2017
  5. WINPRED [Concomitant]
     Active Substance: PREDNISONE
     Dosage: 3 MG, 1X/DAY (AM, WITH BREAKFAST)
     Dates: start: 2017
  6. GENOTROPIN [Suspect]
     Active Substance: SOMATROPIN
     Dosage: 0.2 MG, 5X/WEEK
     Route: 058
  7. GENOTROPIN [Suspect]
     Active Substance: SOMATROPIN
     Dosage: 0.2 MG, 6X/WEEK
     Route: 058
     Dates: start: 2017
  8. CORTEF [Concomitant]
     Active Substance: HYDROCORTISONE
     Indication: PAIN
     Dosage: 10 MG, 1X/DAY IN THE MORNING/5 MG, 1X/DAY IN THE PM
     Route: 048
     Dates: start: 2013, end: 2017
  9. CORTEF [Concomitant]
     Active Substance: HYDROCORTISONE
     Dosage: 5 MG, AT AROUND 8 AM AND 5 MG AROUND 2 PM
     Route: 048
     Dates: start: 20170506, end: 20170506
  10. CORTEF [Concomitant]
     Active Substance: HYDROCORTISONE
     Dosage: 10MG IN THE MORNING
     Route: 048
     Dates: start: 20170507
  11. WINPRED [Concomitant]
     Active Substance: PREDNISONE
     Dosage: 4 MG, UNK
  12. SYNTHROID [Concomitant]
     Active Substance: LEVOTHYROXINE SODIUM
     Dosage: 0.075 MG, DAILY
     Route: 048
     Dates: end: 2017
  13. VITAMIN D /00107901/ [Concomitant]
     Active Substance: ERGOCALCIFEROL
     Dosage: 1000 IU, UNK
  14. GENOTROPIN [Suspect]
     Active Substance: SOMATROPIN
     Dosage: 0.2 MG, DAILY AROUND 9 AM
     Route: 058
     Dates: start: 20170506, end: 20170509
  15. CORTEF [Concomitant]
     Active Substance: HYDROCORTISONE
     Dosage: 20 UNK, UNK
     Route: 048
  16. SYNTHROID [Concomitant]
     Active Substance: LEVOTHYROXINE SODIUM
     Dosage: 0.0625 MG, 1X/DAY
  17. SYNTHROID [Concomitant]
     Active Substance: LEVOTHYROXINE SODIUM
     Dosage: 0.1 MG, DAILY
     Route: 048
     Dates: start: 2017
  18. RIVOTRIL [Concomitant]
     Active Substance: CLONAZEPAM
     Dosage: 0.5 MG, AS NEEDED
     Route: 048
  19. RIVOTRIL [Concomitant]
     Active Substance: CLONAZEPAM
     Dosage: 1 MG, AT BEDTIME
     Route: 048
  20. CORTEF [Concomitant]
     Active Substance: HYDROCORTISONE
     Dosage: 10 MG, 1X/DAY IN THE MORNING/5 MG, 1X/DAY IN THE PM
     Route: 048
  21. CORTISONE [Concomitant]
     Active Substance: CORTISONE
     Dosage: 4 MG, 1X/DAY
  22. CRESTOR [Concomitant]
     Active Substance: ROSUVASTATIN CALCIUM
     Dosage: UNK

REACTIONS (16)
  - Insomnia [Unknown]
  - Drug ineffective [Recovering/Resolving]
  - Palpitations [Recovered/Resolved]
  - Nausea [Unknown]
  - Headache [Unknown]
  - Drug intolerance [Unknown]
  - Eye pain [Unknown]
  - Loss of personal independence in daily activities [Unknown]
  - Dizziness [Unknown]
  - Fluid retention [Unknown]
  - Malaise [Unknown]
  - Off label use [Unknown]
  - Weight increased [Unknown]
  - Stress [Unknown]
  - Menopause [Unknown]
  - Fatigue [Recovering/Resolving]

NARRATIVE: CASE EVENT DATE: 20170505
